FAERS Safety Report 6593653-3 (Version None)
Quarter: 2010Q1

REPORT INFORMATION
  Report Type: 
  Country: None (occurrence: None)
  Receive Date: 20100222
  Receipt Date: 20091010
  Transmission Date: 20100710
  Serious: No
  Sender: FDA-Public Use
  Company Number: US-BRISTOL-MYERS SQUIBB COMPANY-14805451

PATIENT
  Sex: Male

DRUGS (4)
  1. ORENCIA [Suspect]
     Dosage: 4-5 MONTHS OF USE ALSO BATCH# 8H38507,9A55968,9A55969,9B52315,9E52032
  2. REMICADE [Suspect]
     Dosage: TAKING APPROX FOR 9 YEARS
  3. PREDNISONE [Concomitant]
  4. METHOTREXATE [Concomitant]

REACTIONS (1)
  - THERAPEUTIC RESPONSE DECREASED [None]
